FAERS Safety Report 6111627-3 (Version None)
Quarter: 2009Q1

REPORT INFORMATION
  Report Type: 
  Country: None (occurrence: None)
  Receive Date: 20090309
  Receipt Date: 20090219
  Transmission Date: 20090719
  Serious: Yes (Hospitalization)
  Sender: FDA-Public Use
  Company Number: 2009PV000011

PATIENT
  Age: 58 Year
  Sex: Male
  Weight: 62 kg

DRUGS (9)
  1. DEPOCYT [Suspect]
     Indication: CENTRAL NERVOUS SYSTEM LYMPHOMA
     Dosage: 50 MG; X3; INTH
     Route: 037
     Dates: start: 20080704, end: 20080821
  2. METHOTREXATE [Suspect]
     Indication: CENTRAL NERVOUS SYSTEM LYMPHOMA
     Dosage: 5300 MG; QD; IV
     Route: 042
     Dates: start: 20080703, end: 20080820
  3. VINCRISTINE [Suspect]
     Indication: CENTRAL NERVOUS SYSTEM LYMPHOMA
     Dosage: 2 MG; QD; IV
     Route: 042
     Dates: start: 20080703, end: 20080724
  4. METHYLPREDNISOLONE [Suspect]
     Indication: CENTRAL NERVOUS SYSTEM LYMPHOMA
     Dosage: 80 MG; QD; IV
     Route: 042
     Dates: start: 20080703, end: 20080825
  5. RITUXIMAB (RITUXIMAB) [Suspect]
     Indication: CENTRAL NERVOUS SYSTEM LYMPHOMA
     Dosage: 650 MG; QD; IV
     Route: 042
     Dates: start: 20080702, end: 20080819
  6. DOXORUBICIN HCL [Suspect]
     Indication: CENTRAL NERVOUS SYSTEM LYMPHOMA
     Dosage: 106 MG; QD; IV
     Route: 042
     Dates: start: 20080706, end: 20080725
  7. CYCLOPHOSPHAMIDE [Suspect]
     Indication: CENTRAL NERVOUS SYSTEM LYMPHOMA
     Dosage: 2640 MG; QD; IV
     Route: 042
     Dates: start: 20080704, end: 20080727
  8. ARACYTINE (ARACYTINE) [Suspect]
     Indication: CENTRAL NERVOUS SYSTEM LYMPHOMA
     Dosage: 170 MG; QD; IV
     Route: 042
     Dates: start: 20080821, end: 20080825
  9. METHYLPREDNISOLONE 16MG TAB [Suspect]
     Indication: CENTRAL NERVOUS SYSTEM LYMPHOMA
     Dosage: 80 MG; QD; IV
     Route: 042
     Dates: start: 20080707, end: 20080720

REACTIONS (5)
  - EPISTAXIS [None]
  - PNEUMONIA ESCHERICHIA [None]
  - PNEUMONIA KLEBSIELLA [None]
  - THROMBOCYTOPENIA [None]
  - UNEVALUABLE EVENT [None]
